FAERS Safety Report 26019601 (Version 1)
Quarter: 2025Q4

REPORT INFORMATION
  Report Type: Spontaneous
  Country: US (occurrence: None)
  Receive Date: 20251108
  Receipt Date: 20251108
  Transmission Date: 20260117
  Serious: Yes (Other)
  Sender: FDA-CTU
  Company Number: None

PATIENT
  Age: 79 Year
  Sex: Female
  Weight: 56.7 kg

DRUGS (5)
  1. AMIODARONE [Suspect]
     Active Substance: AMIODARONE
     Indication: Atrial fibrillation
     Dosage: OTHER QUANTITY : 1 TABLET(S);?
     Route: 048
     Dates: start: 20250210, end: 20251103
  2. Lisinapril [Concomitant]
  3. rousuvastatin [Concomitant]
  4. ASPIRIN [Concomitant]
     Active Substance: ASPIRIN
  5. Calcium tabs [Concomitant]

REACTIONS (3)
  - Blindness unilateral [None]
  - Optic disc oedema [None]
  - Neurotoxicity [None]

NARRATIVE: CASE EVENT DATE: 20251102
